FAERS Safety Report 5338840-7 (Version None)
Quarter: 2007Q2

REPORT INFORMATION
  Report Type: 
  Country: None (occurrence: None)
  Receive Date: 20070322
  Receipt Date: 20060911
  Transmission Date: 20071010
  Serious: Yes (Other)
  Sender: FDA-Public Use
  Company Number: 200613208BCC

PATIENT
  Age: 10 Year
  Sex: Female
  Weight: 36.7414 kg

DRUGS (1)
  1. ALEVE (CAPLET) [Suspect]
     Indication: MIGRAINE
     Dosage: 440 MG, ONCE, ORAL
     Route: 048
     Dates: start: 20060728

REACTIONS (3)
  - DYSPHAGIA [None]
  - HYPERSENSITIVITY [None]
  - SWOLLEN TONGUE [None]
